FAERS Safety Report 8680720 (Version 2)
Quarter: 2014Q3

REPORT INFORMATION
  Report Type: Spontaneous
  Country: US (occurrence: US)
  Receive Date: 20120724
  Receipt Date: 20140918
  Transmission Date: 20150326
  Serious: Yes (Hospitalization)
  Sender: FDA-Public Use
  Company Number: US-GLAXOSMITHKLINE-A0966798A

PATIENT
  Sex: Female

DRUGS (1)
  1. AVANDIA [Suspect]
     Active Substance: ROSIGLITAZONE MALEATE
     Indication: DIABETES MELLITUS
     Dosage: 8MG PER DAY
     Route: 048
     Dates: start: 1999, end: 200905

REACTIONS (5)
  - Cardiac disorder [Unknown]
  - Stent placement [Unknown]
  - Myocardial ischaemia [Unknown]
  - Myocardial infarction [Not Recovered/Not Resolved]
  - Coronary artery disease [Unknown]
